FAERS Safety Report 14370367 (Version 1)
Quarter: 2018Q1

REPORT INFORMATION
  Report Type: Spontaneous
  Country: GB (occurrence: GB)
  Receive Date: 20180110
  Receipt Date: 20180110
  Transmission Date: 20180509
  Serious: Yes (Hospitalization, Other)
  Sender: FDA-Public Use
  Company Number: GB-ACCORD-062685

PATIENT
  Age: 13 Year
  Sex: Male

DRUGS (13)
  1. MOVICOL [Concomitant]
     Active Substance: POLYETHYLENE GLYCOL 3350\POTASSIUM CHLORIDE\SODIUM BICARBONATE\SODIUM CHLORIDE
  2. LORAZEPAM. [Concomitant]
     Active Substance: LORAZEPAM
  3. DOCUSATE/DOCUSATE CALCIUM/DOCUSATE POTASSIUM/DOCUSATE SODIUM [Concomitant]
  4. IFOSFAMIDE. [Suspect]
     Active Substance: IFOSFAMIDE
     Indication: OSTEOSARCOMA RECURRENT
     Dosage: 3000 MG/M2 ON DAYS 1-3 OF EVERY 21 DAYS FOR 5 CYCLES
     Route: 042
     Dates: start: 20170911, end: 20171204
  5. NABILONE [Concomitant]
     Active Substance: NABILONE
  6. LENVATINIB [Suspect]
     Active Substance: LENVATINIB
     Indication: OSTEOSARCOMA RECURRENT
     Dosage: ALSO RECEIVED AT THE DOSE OF 18 MG/DAY (1 IN 1 D) FROM 14-NOV-2017,
     Route: 048
     Dates: start: 20170911
  7. ONDANSETRON [Concomitant]
     Active Substance: ONDANSETRON
  8. APREPITANT. [Concomitant]
     Active Substance: APREPITANT
  9. DEXAMETHASONE. [Concomitant]
     Active Substance: DEXAMETHASONE
  10. ETOPOSIDE. [Suspect]
     Active Substance: ETOPOSIDE
     Indication: OSTEOSARCOMA RECURRENT
     Dosage: ON DAY 1-3 OF EVERY 21-DAY CYCLE FOR 5 CYCLES
     Route: 042
     Dates: start: 20170911, end: 20171205
  11. MORPHINE [Concomitant]
     Active Substance: MORPHINE
  12. GABAPENTIN. [Concomitant]
     Active Substance: GABAPENTIN
  13. PARACETAMOL [Concomitant]
     Active Substance: ACETAMINOPHEN

REACTIONS (6)
  - Febrile neutropenia [Unknown]
  - Epistaxis [Recovered/Resolved]
  - Off label use [Unknown]
  - Dehydration [Unknown]
  - Mucosal inflammation [Unknown]
  - Toxic encephalopathy [Recovered/Resolved]

NARRATIVE: CASE EVENT DATE: 20171124
